FAERS Safety Report 8853275 (Version 2)
Quarter: 2012Q4

REPORT INFORMATION
  Report Type: 
  Country: US (occurrence: US)
  Receive Date: 20121022
  Receipt Date: 20121107
  Transmission Date: 20130627
  Serious: Yes (Hospitalization, Other)
  Sender: FDA-Public Use
  Company Number: US-GILEAD-2012-0063303

PATIENT
  Age: 72 Year
  Sex: Female

DRUGS (3)
  1. LETAIRIS [Suspect]
     Indication: PULMONARY ARTERIAL HYPERTENSION
     Dosage: 10 mg, QD
     Route: 048
     Dates: start: 20120515
  2. LETAIRIS [Suspect]
     Indication: UNEVALUABLE EVENT
  3. ADCIRCA [Concomitant]

REACTIONS (8)
  - Respiratory failure [Unknown]
  - Pulmonary arterial hypertension [Unknown]
  - Cardiac disorder [Unknown]
  - Gait disturbance [Unknown]
  - Dyspnoea [Unknown]
  - Oedema peripheral [Unknown]
  - Blood sodium increased [Unknown]
  - Treatment noncompliance [Unknown]
